FAERS Safety Report 13152645 (Version 1)
Quarter: 2017Q1

REPORT INFORMATION
  Report Type: Spontaneous
  Country: CA (occurrence: CA)
  Receive Date: 20170125
  Receipt Date: 20170125
  Transmission Date: 20170428
  Serious: Yes (Death)
  Sender: FDA-Public Use
  Company Number: CA-TEVA-732605ACC

PATIENT
  Age: 37 Year
  Sex: Male
  Weight: 121 kg

DRUGS (3)
  1. CODEINE [Suspect]
     Active Substance: CODEINE
     Route: 065
  2. ZOPICLONE [Suspect]
     Active Substance: ZOPICLONE
  3. VENLAFAXINE XR [Suspect]
     Active Substance: VENLAFAXINE HYDROCHLORIDE

REACTIONS (2)
  - Overdose [Fatal]
  - Drug level increased [Fatal]
